FAERS Safety Report 8210906-3 (Version None)
Quarter: 2012Q1

REPORT INFORMATION
  Report Type: 
  Country: None (occurrence: None)
  Receive Date: 20120315
  Receipt Date: 20120307
  Transmission Date: 20120608
  Serious: Yes (Hospitalization, Other)
  Sender: FDA-Public Use
  Company Number: US-BAYER-2011-071930

PATIENT
  Age: 20 Year
  Sex: Female
  Weight: 54.422 kg

DRUGS (19)
  1. YAZ [Suspect]
     Indication: PREMENSTRUAL SYNDROME
  2. YAZ [Suspect]
     Indication: DYSMENORRHOEA
  3. DICYCLOMINE [Concomitant]
     Dosage: 10 MG, PRN
     Route: 048
  4. MACROBID [Concomitant]
     Dosage: 100 MG, BID
     Route: 048
  5. TRAMADOL HCL [Concomitant]
     Dosage: 50 MG, PRN
     Route: 048
  6. OMEPRAZOLE [Concomitant]
     Indication: DYSPEPSIA
     Dosage: 20 MG, DAILY
     Route: 048
     Dates: start: 20091119, end: 20091209
  7. ULTRAN [Concomitant]
  8. IBUPROFEN [Concomitant]
     Dosage: 600 MG, PRN
  9. LOESTRIN FE 1/20 [Concomitant]
     Dosage: DAILY
     Route: 048
  10. ZYRTEC [Concomitant]
     Indication: MULTIPLE ALLERGIES
     Dosage: UNK
     Route: 048
     Dates: start: 20020101
  11. XOPENEX [Concomitant]
     Dosage: 1 PUFF(S), PRN
     Route: 055
  12. OXYCODONE HCL AND ACETAMINOPHEN [Concomitant]
     Dosage: UNK UNK, PRN
     Route: 048
  13. TRINESSA-28 [Concomitant]
     Indication: PREMENSTRUAL SYNDROME
  14. ARMODAFINIL [Concomitant]
     Dosage: 150 MG, UNK
     Route: 048
  15. MAGNESIUM CITRATE [Concomitant]
     Dosage: 1 BOTTLE
     Route: 048
     Dates: start: 20091004
  16. DULCOLAX [Concomitant]
  17. YAZ [Suspect]
     Indication: CONTRACEPTION
     Dosage: UNK
     Dates: start: 20090116, end: 20090828
  18. TRINESSA-28 [Concomitant]
     Indication: CONTRACEPTION
     Dosage: DAILY
     Route: 048
     Dates: start: 20091119, end: 20091209
  19. PHENERGAN [Concomitant]
     Dosage: 12.5 MG, EVERY 6 HOURS AS NEEDED
     Route: 048

REACTIONS (6)
  - CHOLECYSTITIS CHRONIC [None]
  - INJURY [None]
  - VULVOVAGINAL PAIN [None]
  - PAIN [None]
  - URINARY TRACT INFECTION [None]
  - INFECTION [None]
